FAERS Safety Report 8278114 (Version 2)
Quarter: 2012Q4

REPORT INFORMATION
  Report Type: Report from Study
  Country: BR (occurrence: BR)
  Receive Date: 20111207
  Receipt Date: 20121113
  Transmission Date: 20130627
  Serious: Yes (Other)
  Sender: FDA-Public Use
  Company Number: BR-ABBOTT-11P-020-0880203-00

PATIENT
  Sex: Female
  Weight: 64 kg

DRUGS (12)
  1. HUMIRA [Suspect]
     Indication: RHEUMATOID ARTHRITIS
     Route: 058
     Dates: start: 20050901
  2. HUMIRA [Suspect]
     Route: 058
  3. ACTONEL [Concomitant]
     Indication: SPINAL DISORDER
     Route: 048
     Dates: start: 2009
  4. ACTONEL [Concomitant]
     Indication: OSTEOPOROSIS
  5. TENORETIC [Concomitant]
     Indication: HYPERTENSION
     Route: 048
     Dates: start: 1981
  6. TENORETIC [Concomitant]
     Dosage: 50/12MG
     Dates: start: 1997
  7. OSTEONUTRI [Concomitant]
     Route: 048
     Dates: start: 1991
  8. LOSARTAN [Concomitant]
     Indication: HYPERTENSION
     Route: 048
     Dates: start: 1997
  9. OMEPRAZOLE [Concomitant]
     Indication: GASTRIC DISORDER
     Route: 048
     Dates: start: 2001
  10. METHOTREXATE [Concomitant]
     Indication: ARTHRITIS
     Dates: start: 1997
  11. METCORTEN [Concomitant]
     Indication: PAIN
     Route: 048
     Dates: start: 1992
  12. CALCIUM [Concomitant]
     Indication: BONE DISORDER
     Route: 048
     Dates: start: 1997

REACTIONS (7)
  - Spinal disorder [Not Recovered/Not Resolved]
  - Osteoporosis [Not Recovered/Not Resolved]
  - Knee arthroplasty [Unknown]
  - Foot operation [Unknown]
  - Knee operation [Recovered/Resolved]
  - Joint swelling [Not Recovered/Not Resolved]
  - Arthralgia [Not Recovered/Not Resolved]
